FAERS Safety Report 4889251-X (Version None)
Quarter: 2006Q1

REPORT INFORMATION
  Report Type: 
  Country: None (occurrence: None)
  Receive Date: 20060120
  Receipt Date: 20060109
  Transmission Date: 20060701
  Serious: No
  Sender: FDA-Public Use
  Company Number: REM_00180_2006

PATIENT
  Age: 36 Year
  Sex: Female
  Weight: 63.6 kg

DRUGS (12)
  1. REMODULIN [Suspect]
     Indication: PULMONARY HYPERTENSION
     Dosage: 68 NG/KG/MIN CONTINUOUS SC
     Route: 058
     Dates: start: 20050525
  2. TRACLEER [Concomitant]
  3. PLO FORMULATION D [Concomitant]
  4. ZOLOFT [Concomitant]
  5. SERAX [Concomitant]
  6. LASIX [Concomitant]
  7. POTASSIUM CHLORIDE [Concomitant]
  8. LIDODERM [Concomitant]
  9. ULTRACET [Concomitant]
  10. COUMADIN [Concomitant]
  11. MULTIVITAMIN [Concomitant]
  12. PREPARATION H COOLING GEL [Concomitant]

REACTIONS (9)
  - ANIMAL BITE [None]
  - CELLULITIS [None]
  - CRYING [None]
  - DIZZINESS [None]
  - INFUSION SITE ERYTHEMA [None]
  - INFUSION SITE PAIN [None]
  - INFUSION SITE SWELLING [None]
  - INFUSION SITE WARMTH [None]
  - SYNCOPE [None]
